FAERS Safety Report 5003065-1 (Version None)
Quarter: 2006Q2

REPORT INFORMATION
  Report Type: 
  Country: None (occurrence: None)
  Receive Date: 20060516
  Receipt Date: 20050711
  Transmission Date: 20061013
  Serious: Yes (Hospitalization)
  Sender: FDA-Public Use
  Company Number: US-MERCK-0507USA01628

PATIENT
  Age: 72 Year
  Sex: Male
  Weight: 70 kg

DRUGS (6)
  1. VIOXX [Suspect]
     Indication: POLYARTHRITIS
     Route: 048
     Dates: start: 20000616, end: 20040930
  2. AVAPRO [Concomitant]
     Indication: HYPERTENSION
     Route: 065
     Dates: start: 19990418
  3. FLOMAX (MORNIFLUMATE) [Concomitant]
     Route: 065
  4. ASPIRIN [Concomitant]
     Indication: PAIN
     Route: 065
  5. ASPIRIN [Concomitant]
     Indication: CEREBROVASCULAR ACCIDENT PROPHYLAXIS
     Route: 065
  6. VIOXX [Suspect]
     Indication: BONE PAIN
     Route: 048
     Dates: start: 20000616, end: 20040930

REACTIONS (11)
  - AGITATION [None]
  - ANXIETY [None]
  - CEREBRAL ISCHAEMIA [None]
  - CEREBROVASCULAR ACCIDENT [None]
  - CONFUSIONAL STATE [None]
  - DEPRESSION [None]
  - EMOTIONAL DISTRESS [None]
  - ERECTILE DYSFUNCTION [None]
  - LACUNAR INFARCTION [None]
  - TRANSIENT ISCHAEMIC ATTACK [None]
  - WEIGHT DECREASED [None]
